FAERS Safety Report 7042716-7 (Version None)
Quarter: 2010Q4

REPORT INFORMATION
  Report Type: 
  Country: None (occurrence: None)
  Receive Date: 20101013
  Receipt Date: 20100504
  Transmission Date: 20110411
  Serious: No
  Sender: FDA-Public Use
  Company Number: US-ASTRAZENECA-2010SE20132

PATIENT
  Age: 63 Year
  Sex: Female
  Weight: 91.2 kg

DRUGS (19)
  1. SYMBICORT [Suspect]
     Indication: ASTHMA
     Dosage: 80 MCG
     Route: 055
     Dates: start: 20090501
  2. CITALOPRAM HYDROBROMIDE [Concomitant]
  3. CALTRATE [Concomitant]
  4. PLAVIX [Concomitant]
  5. HYDROCHLOROT [Concomitant]
  6. METOPROLOL [Concomitant]
  7. CAPADEX [Concomitant]
  8. ZANTAC [Concomitant]
  9. SIMVASTATIN [Concomitant]
  10. MELOXICAM [Concomitant]
  11. NITROGLYCERIN [Concomitant]
  12. TEMAZEPAM [Concomitant]
  13. PROAIR HFA [Concomitant]
  14. ATROVENT [Concomitant]
  15. ASPIRIN [Concomitant]
  16. NITROGLYCERIN [Concomitant]
  17. LISINOPRIL [Concomitant]
  18. NASACORT [Concomitant]
  19. LORATADINE [Concomitant]

REACTIONS (1)
  - THROAT LESION [None]
